FAERS Safety Report 9075812 (Version 1)
Quarter: 2013Q1

REPORT INFORMATION
  Report Type: Spontaneous
  Country: PR (occurrence: PR)
  Receive Date: 20130131
  Receipt Date: 20130131
  Transmission Date: 20140127
  Serious: Yes (Other)
  Sender: FDA-Public Use
  Company Number: PR-ABBOTT-12P-131-0997020-00

PATIENT
  Sex: Male
  Weight: 88.53 kg

DRUGS (8)
  1. HUMIRA [Suspect]
     Indication: PSORIATIC ARTHROPATHY
     Route: 058
     Dates: start: 2009, end: 201207
  2. HUMIRA [Suspect]
     Indication: RHEUMATOID ARTHRITIS
  3. KEPPRA [Concomitant]
     Indication: PRODUCT USED FOR UNKNOWN INDICATION
     Dosage: UNKNOWN
  4. LAMICTAL [Concomitant]
     Indication: PRODUCT USED FOR UNKNOWN INDICATION
     Dosage: UNKNOWN
  5. CALCIO [Concomitant]
     Indication: PRODUCT USED FOR UNKNOWN INDICATION
     Dosage: UNKNOWN
     Route: 048
  6. LOSARTAN [Concomitant]
     Indication: HYPERTENSION
     Dosage: UNKNOWN
     Route: 048
  7. SEROQUEL [Concomitant]
     Indication: PRODUCT USED FOR UNKNOWN INDICATION
     Route: 048
  8. RAZADYNA [Concomitant]
     Indication: PRODUCT USED FOR UNKNOWN INDICATION
     Route: 048

REACTIONS (3)
  - Prostate cancer [Not Recovered/Not Resolved]
  - Metastases to bone [Not Recovered/Not Resolved]
  - Bone cancer [Not Recovered/Not Resolved]
